FAERS Safety Report 8094213-8 (Version None)
Quarter: 2012Q1

REPORT INFORMATION
  Report Type: 
  Country: None (occurrence: None)
  Receive Date: 20120131
  Receipt Date: 20120120
  Transmission Date: 20120608
  Serious: No
  Sender: FDA-Public Use
  Company Number: NO-US-EMD SERONO, INC.-7108275

PATIENT
  Sex: Female

DRUGS (4)
  1. GONAL-F [Suspect]
     Indication: IN VITRO FERTILISATION
  2. ENOXAPARIN SODIUM [Concomitant]
     Route: 058
     Dates: start: 20100728, end: 20100915
  3. PREDNISOLONE [Concomitant]
     Route: 048
     Dates: start: 20100728, end: 20100915
  4. ENOXAPARIN SODIUM [Concomitant]
     Route: 058
     Dates: start: 20100728, end: 20100915

REACTIONS (1)
  - PREMATURE DELIVERY [None]
